FAERS Safety Report 14623309 (Version 2)
Quarter: 2018Q1

REPORT INFORMATION
  Report Type: Spontaneous
  Country: FR (occurrence: FR)
  Receive Date: 20180312
  Receipt Date: 20180330
  Transmission Date: 20180509
  Serious: Yes (Hospitalization, Other)
  Sender: FDA-Public Use
  Company Number: FR-ROCHE-2088042

PATIENT
  Age: 45 Year
  Sex: Female
  Weight: 79.2 kg

DRUGS (2)
  1. IMETH [Suspect]
     Active Substance: METHOTREXATE SODIUM
     Indication: POLYARTHRITIS
     Route: 051
     Dates: start: 20171204, end: 20180129
  2. MABTHERA [Suspect]
     Active Substance: RITUXIMAB
     Indication: POLYARTHRITIS
     Route: 058

REACTIONS (5)
  - Toxic skin eruption [Recovering/Resolving]
  - Rash pustular [Recovering/Resolving]
  - Bicytopenia [Recovering/Resolving]
  - Mucosal inflammation [Recovering/Resolving]
  - Erythema [Recovering/Resolving]

NARRATIVE: CASE EVENT DATE: 20180125
